FAERS Safety Report 4685919-9 (Version None)
Quarter: 2005Q2

REPORT INFORMATION
  Report Type: 
  Country: None (occurrence: None)
  Receive Date: 20050607
  Receipt Date: 20050607
  Transmission Date: 20051028
  Serious: Yes (Death)
  Sender: FDA-Public Use
  Company Number: None

PATIENT
  Age: 67 Year
  Sex: Male
  Weight: 108.4097 kg

DRUGS (10)
  1. LYMPHOCYTES [Suspect]
  2. ACYCLOVIR [Concomitant]
  3. PREVACID [Concomitant]
  4. LASIX [Concomitant]
  5. K-DUR 10 [Concomitant]
  6. PROCRIT [Concomitant]
  7. TYLENOL (CAPLET) [Concomitant]
  8. ZYRTEC [Concomitant]
  9. VORICONAZOLE [Concomitant]
  10. OXYCODONE HCL [Concomitant]

REACTIONS (2)
  - MALIGNANT NEOPLASM PROGRESSION [None]
  - PYREXIA [None]
